FAERS Safety Report 16217154 (Version 1)
Quarter: 2019Q2

REPORT INFORMATION
  Report Type: Spontaneous
  Country: US (occurrence: US)
  Receive Date: 20190419
  Receipt Date: 20190419
  Transmission Date: 20190711
  Serious: Yes (Hospitalization, Other)
  Sender: FDA-Public Use
  Company Number: US-HIKMA PHARMACEUTICALS USA INC.-US-H14001-19-02466

PATIENT
  Age: 71 Year
  Sex: Female

DRUGS (2)
  1. PROPRANOLOL HYDROCHLORIDE. [Suspect]
     Active Substance: PROPRANOLOL HYDROCHLORIDE
     Indication: HYPERTENSION
     Route: 065
  2. IRON [Concomitant]
     Active Substance: IRON
     Indication: SUPPLEMENTATION THERAPY
     Route: 065

REACTIONS (7)
  - Acute kidney injury [Unknown]
  - Bradycardia [Unknown]
  - Hypotension [Unknown]
  - Respiratory distress [Unknown]
  - Hypoperfusion [Unknown]
  - Lactic acidosis [Unknown]
  - Toxicity to various agents [Unknown]
